FAERS Safety Report 17163452 (Version 1)
Quarter: 2019Q4

REPORT INFORMATION
  Report Type: Spontaneous
  Country: US (occurrence: US)
  Receive Date: 20191124
  Receipt Date: 20191124
  Transmission Date: 20200122
  Serious: No
  Sender: FDA-Public Use
  Company Number: None

PATIENT
  Age: 67 Year
  Sex: Male
  Weight: 93 kg

DRUGS (2)
  1. COLCHICINE. [Suspect]
     Active Substance: COLCHICINE
     Indication: PAIN
  2. COLCHICINE. [Suspect]
     Active Substance: COLCHICINE
     Indication: PAIN
     Dates: start: 20190810, end: 20190813

REACTIONS (2)
  - Asthenia [None]
  - Rash [None]

NARRATIVE: CASE EVENT DATE: 20190813
